FAERS Safety Report 4684060-9 (Version None)
Quarter: 2005Q2

REPORT INFORMATION
  Report Type: 
  Country: None (occurrence: None)
  Receive Date: 20050525
  Receipt Date: 20050407
  Transmission Date: 20051028
  Serious: Yes (Hospitalization)
  Sender: FDA-Public Use
  Company Number: SE-JNJFOC-20050404066

PATIENT
  Age: 51 Year
  Sex: Male

DRUGS (6)
  1. NOBLIGAN (TRAMADOL HYDROCHLORIDE) [Suspect]
     Indication: BACK PAIN
     Dosage: 400 MG, ORAL
     Route: 048
     Dates: start: 19960101
  2. METOPROLOL TARTRATE [Concomitant]
  3. GLUCOPHAGE [Concomitant]
  4. GLYBURIDE [Concomitant]
  5. ZOCORD (SIMVASTATIN) [Concomitant]
  6. ASPIRIN [Concomitant]

REACTIONS (2)
  - DRUG TOLERANCE INCREASED [None]
  - DRUG WITHDRAWAL SYNDROME [None]
